FAERS Safety Report 5538282-5 (Version None)
Quarter: 2007Q4

REPORT INFORMATION
  Report Type: 
  Country: None (occurrence: None)
  Receive Date: 20071123
  Receipt Date: 20070604
  Transmission Date: 20080405
  Serious: Yes (Other)
  Sender: FDA-Public Use
  Company Number: US-JNJFOC-20070601606

PATIENT
  Sex: Female

DRUGS (1)
  1. LEVAQUIN [Suspect]
     Indication: SIALOADENITIS
     Dosage: MEDICATION WAS STOPPED ON DAY 12

REACTIONS (2)
  - INSOMNIA [None]
  - SUICIDAL IDEATION [None]
